FAERS Safety Report 7054721-5 (Version None)
Quarter: 2010Q4

REPORT INFORMATION
  Report Type: 
  Country: None (occurrence: None)
  Receive Date: 20101015
  Receipt Date: 20101006
  Transmission Date: 20110411
  Serious: Yes (Life-Threatening, Hospitalization, Other)
  Sender: FDA-Public Use
  Company Number: 2010AC000530

PATIENT
  Age: 61 Year
  Sex: Female

DRUGS (19)
  1. DIGOXIN [Suspect]
     Dosage: 0.25 MG;PO
     Route: 048
     Dates: start: 20050629, end: 20070917
  2. AXID [Concomitant]
  3. ZOLOFT [Concomitant]
  4. ASPIRIN [Concomitant]
  5. PRILOSEC [Concomitant]
  6. LEVOXYL [Concomitant]
  7. CARDIZEM LA [Concomitant]
  8. CORDARONE [Concomitant]
  9. ALDACTONE [Concomitant]
  10. ACIPHEX [Concomitant]
  11. AVAPRO [Concomitant]
  12. CELEBREX [Concomitant]
  13. CATAPRES [Concomitant]
  14. DEMEROL [Concomitant]
  15. VASOTEC [Concomitant]
  16. COUMADIN [Concomitant]
  17. LEXAPRO [Concomitant]
  18. SYNTHROID [Concomitant]
  19. TYLENOL [Concomitant]

REACTIONS (20)
  - ABDOMINAL PAIN [None]
  - ACUTE MYOCARDIAL INFARCTION [None]
  - ASTHENIA [None]
  - ATRIOVENTRICULAR BLOCK FIRST DEGREE [None]
  - BACK PAIN [None]
  - BLOOD PRESSURE INCREASED [None]
  - DEHYDRATION [None]
  - DIARRHOEA [None]
  - FALL [None]
  - HAEMANGIOMA OF SPLEEN [None]
  - HYPERCOAGULATION [None]
  - HYPOCOAGULABLE STATE [None]
  - INTERNATIONAL NORMALISED RATIO INCREASED [None]
  - MYOCARDIAL ISCHAEMIA [None]
  - NAUSEA [None]
  - PROTHROMBIN TIME PROLONGED [None]
  - RENAL FAILURE [None]
  - THERAPEUTIC AGENT TOXICITY [None]
  - VOMITING [None]
  - WEIGHT DECREASED [None]
